FAERS Safety Report 8352155-4 (Version None)
Quarter: 2012Q2

REPORT INFORMATION
  Report Type: 
  Country: None (occurrence: None)
  Receive Date: 20120511
  Receipt Date: 20120504
  Transmission Date: 20120825
  Serious: Yes (Disabling)
  Sender: FDA-Public Use
  Company Number: NO-JNJFOC-20120506747

PATIENT
  Sex: Male

DRUGS (2)
  1. SIMPONI [Suspect]
     Dosage: EVERY 3.5 WEEKS
     Route: 058
     Dates: start: 20100901
  2. SIMPONI [Suspect]
     Indication: ANKYLOSING SPONDYLITIS
     Route: 058
     Dates: start: 20110101, end: 20120320

REACTIONS (4)
  - ARTHRALGIA [None]
  - THERAPEUTIC RESPONSE DECREASED [None]
  - OROPHARYNGEAL PAIN [None]
  - INAPPROPRIATE SCHEDULE OF DRUG ADMINISTRATION [None]
